FAERS Safety Report 20848753 (Version 1)
Quarter: 2022Q2

REPORT INFORMATION
  Report Type: Spontaneous
  Country: US (occurrence: None)
  Receive Date: 20220518
  Receipt Date: 20220518
  Transmission Date: 20220720
  Serious: Yes (Hospitalization)
  Sender: FDA-Public Use
  Company Number: None

PATIENT
  Age: 3 Month
  Sex: Male
  Weight: 79.38 kg

DRUGS (3)
  1. CARVEDILOL [Suspect]
     Active Substance: CARVEDILOL
     Indication: Hypertension
     Dosage: FREQUENCY : TWICE A DAY;?
     Route: 048
     Dates: start: 20211201, end: 20220309
  2. NIFEDIPINE [Suspect]
     Active Substance: NIFEDIPINE
  3. ATENOLOL [Suspect]
     Active Substance: ATENOLOL

REACTIONS (9)
  - Dyspnoea [None]
  - Fatigue [None]
  - Peripheral swelling [None]
  - Peripheral swelling [None]
  - Chronic obstructive pulmonary disease [None]
  - Asthenia [None]
  - Dizziness [None]
  - Dizziness [None]
  - Rash [None]

NARRATIVE: CASE EVENT DATE: 20220307
